FAERS Safety Report 4297494-1 (Version None)
Quarter: 2004Q1

REPORT INFORMATION
  Report Type: 
  Country: None (occurrence: None)
  Receive Date: 20040218
  Receipt Date: 20040206
  Transmission Date: 20041129
  Serious: Yes (Other)
  Sender: FDA-Public Use
  Company Number: GB-GLAXOSMITHKLINE-B0322543A

PATIENT
  Age: 75 Year
  Sex: Male
  Weight: 81 kg

DRUGS (4)
  1. AVODART [Suspect]
     Dosage: .5MG UNKNOWN
     Route: 048
     Dates: start: 20031001, end: 20040101
  2. RAMIPRIL [Concomitant]
     Indication: HYPERTENSION
     Dosage: 10MG PER DAY
     Route: 048
  3. ASPIRIN [Concomitant]
     Indication: HYPERTENSION
     Dosage: 75MG PER DAY
     Route: 048
  4. DOXAZOSIN MESYLATE [Concomitant]
     Indication: HYPERTENSION
     Dosage: 1MG PER DAY
     Route: 048

REACTIONS (4)
  - ARTHRALGIA [None]
  - HEADACHE [None]
  - PAIN IN EXTREMITY [None]
  - TOOTHACHE [None]
